FAERS Safety Report 25001715 (Version 1)
Quarter: 2025Q1

REPORT INFORMATION
  Report Type: Spontaneous
  Country: IT (occurrence: IT)
  Receive Date: 20250223
  Receipt Date: 20250223
  Transmission Date: 20250408
  Serious: Yes (Life-Threatening, Hospitalization, Congenital Anomaly, Other)
  Sender: Haleon PLC
  Company Number: IT-BRISTOL-MYERS SQUIBB COMPANY-12703161

PATIENT
  Sex: Female
  Weight: 1.97 kg

DRUGS (12)
  1. DICLOFENAC SODIUM [Suspect]
     Active Substance: DICLOFENAC SODIUM
     Indication: Foetal exposure during pregnancy
     Dosage: 75 MG, QD (MATERNAL DOSE: 75 MG, QD)
     Route: 064
  2. DICLOFENAC SODIUM [Suspect]
     Active Substance: DICLOFENAC SODIUM
     Dosage: UNK UNK, QD (MATERNAL DOSE: 100-200 MG, QD)
     Route: 064
  3. NIMESULIDE [Suspect]
     Active Substance: NIMESULIDE
     Indication: Foetal exposure during pregnancy
     Dosage: 100 MG, QD
     Route: 064
  4. NIMESULIDE [Suspect]
     Active Substance: NIMESULIDE
     Dosage: 1 DF, QD
     Route: 064
  5. NIMESULIDE [Suspect]
     Active Substance: NIMESULIDE
     Dosage: UNK UNK, QD (MATERNAL DOSE: 200 MG, QD,100-200 MG, DAILY)
     Route: 064
  6. NIMESULIDE [Suspect]
     Active Substance: NIMESULIDE
     Dosage: 100 MG, QD
     Route: 064
  7. NIMESULIDE [Suspect]
     Active Substance: NIMESULIDE
     Dosage: UNK UNK, QD (MATERNAL DOSE: 100 -200 MG, QD)
     Route: 064
  8. ACETAMINOPHEN [Suspect]
     Active Substance: ACETAMINOPHEN
     Indication: Foetal exposure during pregnancy
     Route: 064
  9. ACETAMINOPHEN [Suspect]
     Active Substance: ACETAMINOPHEN
     Dosage: 1 DF, QD (MATERNAL DOSE: 1 DF, QD (1 UG/LITRE), 8-9 G, QD FROM THE 2ND TO THE 3RD MONTH)
     Route: 064
  10. ACETAMINOPHEN [Suspect]
     Active Substance: ACETAMINOPHEN
     Route: 064
  11. ACETAMINOPHEN [Suspect]
     Active Substance: ACETAMINOPHEN
     Route: 064
  12. ACETAMINOPHEN [Suspect]
     Active Substance: ACETAMINOPHEN
     Dosage: 1 DF, QD
     Route: 064

REACTIONS (16)
  - Ductus arteriosus stenosis foetal [Recovered/Resolved]
  - Oligohydramnios [Unknown]
  - Low birth weight baby [Unknown]
  - Amniotic cavity disorder [Unknown]
  - Bradycardia neonatal [Recovered/Resolved]
  - Cyanosis neonatal [Recovered/Resolved]
  - Polyuria [Unknown]
  - Blood creatinine increased [Recovered/Resolved]
  - Specific gravity urine abnormal [Unknown]
  - Bladder disorder [Unknown]
  - Foetal exposure during pregnancy [Unknown]
  - Premature baby [Unknown]
  - Emphysema [Unknown]
  - Neonatal respiratory distress syndrome [Recovered/Resolved]
  - Renal failure neonatal [Recovered/Resolved]
  - Neonatal respiratory acidosis [Recovered/Resolved]
